FAERS Safety Report 19327151 (Version 2)
Quarter: 2021Q2

REPORT INFORMATION
  Report Type: Spontaneous
  Country: US (occurrence: US)
  Receive Date: 20210528
  Receipt Date: 20210607
  Transmission Date: 20210717
  Serious: Yes (Other)
  Sender: FDA-Public Use
  Company Number: US-ROCHE-2833556

PATIENT
  Age: 65 Year
  Sex: Female

DRUGS (31)
  1. OCREVUS [Suspect]
     Active Substance: OCRELIZUMAB
     Indication: MULTIPLE SCLEROSIS
     Route: 048
     Dates: start: 20170112
  2. CALCIUM PHOSPHATE [Concomitant]
     Active Substance: CALCIUM PHOSPHATE
  3. CHROMIUM [Concomitant]
     Active Substance: CHROMIC CHLORIDE\CHROMIUM
  4. AUBAGIO [Concomitant]
     Active Substance: TERIFLUNOMIDE
     Route: 048
     Dates: end: 20190101
  5. AUBAGIO [Concomitant]
     Active Substance: TERIFLUNOMIDE
     Route: 048
     Dates: start: 20200109
  6. CALCIUM CARBONATE. [Concomitant]
     Active Substance: CALCIUM CARBONATE
  7. POTASSIUM BICARBONATE. [Concomitant]
     Active Substance: POTASSIUM BICARBONATE
  8. SODIUM PHOSPHATE [Concomitant]
     Active Substance: SODIUM PHOSPHATE
  9. POTASSIUM PHOSPHATE DIBASIC [Concomitant]
     Active Substance: POTASSIUM PHOSPHATE, DIBASIC
  10. ASCORBIC ACID. [Concomitant]
     Active Substance: ASCORBIC ACID
  11. CALCIUM PANTOTHENATE [Concomitant]
     Active Substance: CALCIUM PANTOTHENATE
  12. CYANOCOBALAMIN. [Concomitant]
     Active Substance: CYANOCOBALAMIN
  13. FOLIC ACID. [Concomitant]
     Active Substance: FOLIC ACID
  14. MAGNESIUM HYDROXIDE. [Concomitant]
     Active Substance: MAGNESIUM HYDROXIDE
  15. MANGANESE GLUCONATE. [Concomitant]
     Active Substance: MANGANESE GLUCONATE
  16. PYRIDOXINE HYDROCHLORIDE. [Concomitant]
     Active Substance: PYRIDOXINE HYDROCHLORIDE
  17. NIFEDIPINE. [Concomitant]
     Active Substance: NIFEDIPINE
  18. TERAZOSIN [Concomitant]
     Active Substance: TERAZOSIN HYDROCHLORIDE
  19. MAGNESIUM CARBONATE [Concomitant]
     Active Substance: MAGNESIUM CARBONATE
  20. POTASSIUM CARBONATE [Concomitant]
     Active Substance: POTASSIUM CARBONATE
  21. RIBOFLAVIN SODIUM PHOSPHATE [Concomitant]
     Active Substance: RIBOFLAVIN 5^-PHOSPHATE SODIUM ANHYDROUS
  22. NICOTINIC ACID [Concomitant]
     Active Substance: NIACIN
  23. QUERCETIN [Concomitant]
     Active Substance: QUERCETIN
  24. SODIUM BICARBONATE. [Concomitant]
     Active Substance: SODIUM BICARBONATE
  25. ZINC ASCORBATE [Concomitant]
  26. AUBAGIO [Concomitant]
     Active Substance: TERIFLUNOMIDE
     Route: 048
     Dates: start: 20170112
  27. THIAMINE HYDROCHLORIDE. [Concomitant]
     Active Substance: THIAMINE HYDROCHLORIDE
  28. THIOCTIC ACID [Concomitant]
     Active Substance: .ALPHA.-LIPOIC ACID
  29. PARACETAMOL [Concomitant]
     Active Substance: ACETAMINOPHEN
     Indication: HEADACHE
  30. AMOXICILLINE [Concomitant]
     Active Substance: AMOXICILLIN
     Indication: SINUSITIS
  31. AUBAGIO [Concomitant]
     Active Substance: TERIFLUNOMIDE
     Route: 048
     Dates: start: 20200731, end: 20200830

REACTIONS (10)
  - Nausea [Not Recovered/Not Resolved]
  - Diarrhoea [Recovered/Resolved]
  - Diverticulum [Unknown]
  - Fatigue [Not Recovered/Not Resolved]
  - Sinusitis [Not Recovered/Not Resolved]
  - Off label use [Unknown]
  - Systemic lupus erythematosus [Unknown]
  - Hypoaesthesia [Not Recovered/Not Resolved]
  - Cough [Not Recovered/Not Resolved]
  - Headache [Not Recovered/Not Resolved]

NARRATIVE: CASE EVENT DATE: 20171203
